FAERS Safety Report 13139075 (Version 3)
Quarter: 2017Q2

REPORT INFORMATION
  Report Type: Report from Study
  Country: BO (occurrence: BO)
  Receive Date: 20170123
  Receipt Date: 20170407
  Transmission Date: 20170830
  Serious: Yes (Hospitalization, Other)
  Sender: FDA-Public Use
  Company Number: PHHY2017BO001067

PATIENT
  Sex: Male

DRUGS (1)
  1. GLIVEC [Suspect]
     Active Substance: IMATINIB MESYLATE
     Indication: CHRONIC MYELOID LEUKAEMIA
     Dosage: 400 MG, UNK
     Route: 065

REACTIONS (10)
  - Respiratory failure [Unknown]
  - Insomnia [Unknown]
  - Chronic myeloid leukaemia [Unknown]
  - Pulmonary oedema [Unknown]
  - Stress [Unknown]
  - Malaise [Unknown]
  - Pyrexia [Unknown]
  - Anaemia [Unknown]
  - Chronic myeloid leukaemia recurrent [Unknown]
  - Asthenia [Unknown]
